FAERS Safety Report 21192151 (Version 8)
Quarter: 2022Q4

REPORT INFORMATION
  Report Type: Report from Study
  Country: CA (occurrence: CA)
  Receive Date: 20220809
  Receipt Date: 20221013
  Transmission Date: 20230112
  Serious: Yes (Hospitalization, Other)
  Sender: FDA-Public Use
  Company Number: CA-BAUSCH-BL-2020-009957

PATIENT
  Age: 51 Year
  Sex: Female

DRUGS (5)
  1. SILIQ [Suspect]
     Active Substance: BRODALUMAB
     Indication: Psoriasis
     Dosage: 210 MG/1.5 ML, WEEK 0, 1 AND 2
     Route: 058
     Dates: start: 20200326, end: 202004
  2. SILIQ [Suspect]
     Active Substance: BRODALUMAB
     Dosage: 210 MG/1.5 ML
     Route: 058
     Dates: start: 202004
  3. SILIQ [Suspect]
     Active Substance: BRODALUMAB
     Dosage: 210 MG/1.5 ML
     Route: 058
     Dates: start: 202112
  4. SILIQ [Suspect]
     Active Substance: BRODALUMAB
     Dosage: 210 MG/1.5 ML
     Route: 058
     Dates: start: 202201
  5. SILIQ [Suspect]
     Active Substance: BRODALUMAB
     Dosage: 210 MG/1.5 ML, Q 2 WEEKS
     Route: 058
     Dates: start: 20220804

REACTIONS (16)
  - Accident [Not Recovered/Not Resolved]
  - Orthopaedic procedure [Unknown]
  - Limb injury [Not Recovered/Not Resolved]
  - Psoriasis [Not Recovered/Not Resolved]
  - Pustular psoriasis [Recovered/Resolved]
  - Condition aggravated [Recovered/Resolved]
  - Eye injury [Recovered/Resolved]
  - Malaise [Unknown]
  - Suspected COVID-19 [Unknown]
  - Injection site bruising [Recovered/Resolved]
  - Therapeutic product effect incomplete [Unknown]
  - Needle issue [Unknown]
  - Product dose omission issue [Unknown]
  - Product distribution issue [Unknown]
  - Inappropriate schedule of product administration [Unknown]
  - Product dose omission in error [Unknown]

NARRATIVE: CASE EVENT DATE: 20200101
